FAERS Safety Report 8893433 (Version 1)
Quarter: 2012Q4

REPORT INFORMATION
  Report Type: Report from Study
  Country: CA (occurrence: CA)
  Receive Date: 20121108
  Receipt Date: 20121108
  Transmission Date: 20130627
  Serious: Yes (Hospitalization)
  Sender: FDA-Public Use
  Company Number: CA-JNJFOC-20121015994

PATIENT
  Sex: Female
  Weight: 62.14 kg

DRUGS (2)
  1. REMICADE [Suspect]
     Indication: COLITIS ULCERATIVE
     Route: 042
  2. WARFARIN [Concomitant]
     Route: 065
     Dates: start: 201008

REACTIONS (2)
  - Thrombosis [Unknown]
  - Ulcer haemorrhage [Unknown]
